FAERS Safety Report 15602088 (Version 1)
Quarter: 2018Q4

REPORT INFORMATION
  Report Type: Spontaneous
  Country: BR (occurrence: BR)
  Receive Date: 20181109
  Receipt Date: 20181109
  Transmission Date: 20190205
  Serious: Yes (Hospitalization)
  Sender: FDA-Public Use
  Company Number: BR-ABBVIE-18K-020-2550138-00

PATIENT
  Sex: Female

DRUGS (8)
  1. ANDROGEL [Suspect]
     Active Substance: TESTOSTERONE
     Indication: LOSS OF LIBIDO
  2. GABAPENTIN. [Concomitant]
     Active Substance: GABAPENTIN
     Indication: BONE PAIN
     Route: 048
     Dates: start: 2016, end: 2017
  3. GABAPENTIN. [Concomitant]
     Active Substance: GABAPENTIN
     Route: 048
     Dates: start: 2018
  4. ESCITALOPRAM OXALATE. [Concomitant]
     Active Substance: ESCITALOPRAM OXALATE
     Indication: ANXIETY
     Route: 048
     Dates: start: 2017
  5. ANDROGEL [Suspect]
     Active Substance: TESTOSTERONE
     Indication: CHILLS
  6. ANDROGEL [Suspect]
     Active Substance: TESTOSTERONE
     Indication: MENOPAUSE
  7. ANDROGEL [Suspect]
     Active Substance: TESTOSTERONE
     Indication: HOT FLUSH
     Dosage: 1 SACHET DAILY
     Route: 061
     Dates: start: 2016, end: 201802
  8. ESCITALOPRAM OXALATE. [Concomitant]
     Active Substance: ESCITALOPRAM OXALATE
     Indication: DEPRESSION

REACTIONS (5)
  - Bone neoplasm [Recovered/Resolved]
  - Hot flush [Unknown]
  - Bone neoplasm [Unknown]
  - Off label use [Unknown]
  - Product availability issue [Unknown]

NARRATIVE: CASE EVENT DATE: 2016
